FAERS Safety Report 10581009 (Version 1)
Quarter: 2014Q4

REPORT INFORMATION
  Report Type: Spontaneous
  Country: US (occurrence: None)
  Receive Date: 20141112
  Receipt Date: 20141112
  Transmission Date: 20150529
  Serious: Yes (Other)
  Sender: FDA-Public Use
  Company Number: None

PATIENT
  Age: 8 Year
  Sex: Male
  Weight: 30.39 kg

DRUGS (1)
  1. NIX [Suspect]
     Active Substance: PERMETHRIN
     Indication: LICE INFESTATION
     Dates: start: 20140915, end: 20140915

REACTIONS (3)
  - Seizure [None]
  - Vomiting [None]
  - Somnolence [None]

NARRATIVE: CASE EVENT DATE: 20140915
